FAERS Safety Report 6185036-5 (Version None)
Quarter: 2009Q2

REPORT INFORMATION
  Report Type: 
  Country: None (occurrence: None)
  Receive Date: 20090511
  Receipt Date: 20090504
  Transmission Date: 20091009
  Serious: Yes (Hospitalization)
  Sender: FDA-Public Use
  Company Number: DE-WYE-G03500509

PATIENT
  Sex: Male
  Weight: 90 kg

DRUGS (3)
  1. TREVILOR RETARD [Suspect]
     Dosage: MAX. 160 CAPSULES (OVERDOSE AMOUNT MAX. 24000 MG)
     Route: 048
     Dates: start: 20090413, end: 20090413
  2. ALCOHOL [Suspect]
     Dosage: UNKNOWN AMOUNT
     Route: 048
     Dates: start: 20090413, end: 20090413
  3. HYPNOREX - SLOW RELEASE [Suspect]
     Dosage: MAX. 90 TABLETS (OVERDOSE AMOUNT MAX. 3600 MG)
     Route: 048
     Dates: start: 20090413, end: 20090413

REACTIONS (8)
  - ALANINE AMINOTRANSFERASE INCREASED [None]
  - ASPARTATE AMINOTRANSFERASE INCREASED [None]
  - BLOOD CREATININE INCREASED [None]
  - BLOOD LACTIC ACID INCREASED [None]
  - GAMMA-GLUTAMYLTRANSFERASE INCREASED [None]
  - INTENTIONAL OVERDOSE [None]
  - SOMNOLENCE [None]
  - SUICIDE ATTEMPT [None]
